FAERS Safety Report 10163860 (Version 1)
Quarter: 2014Q2

REPORT INFORMATION
  Report Type: Spontaneous
  Country: FR (occurrence: FR)
  Receive Date: 20140509
  Receipt Date: 20140509
  Transmission Date: 20141212
  Serious: Yes (Disabling, Other)
  Sender: FDA-Public Use
  Company Number: PHHY2014FR055042

PATIENT
  Age: 54 Year
  Sex: Male

DRUGS (11)
  1. CYTARABINE EBEWE [Suspect]
     Dosage: 8000 MG, UNK
     Route: 042
     Dates: start: 20131018, end: 20140114
  2. METHOTREXATE [Suspect]
     Dosage: 15 MG, UNK
     Route: 037
     Dates: start: 20130317, end: 20140114
  3. CISPLATINE [Suspect]
     Dosage: 200 MG, UNK
     Route: 042
     Dates: start: 20131018, end: 20140114
  4. MABTHERA [Suspect]
     Dosage: 750 MG, UNK
     Route: 042
     Dates: start: 20131018, end: 20140114
  5. ARACYTINE [Suspect]
     Dosage: 40 MG, UNK
     Route: 037
     Dates: start: 20131017, end: 20140114
  6. MINRIN MELT [Concomitant]
     Dosage: 120 MG, TID
     Route: 048
  7. HYDROCORTISONE [Concomitant]
     Dosage: 10 MG, BID
     Route: 048
  8. LEVETIRACETAM MYLAN [Concomitant]
     Dosage: 500 MG, BID
     Route: 048
  9. LEVOTHYROX [Concomitant]
     Dosage: 125 UG, QD
     Route: 048
  10. EUPANTOL [Concomitant]
     Dosage: 20 MG, QD
     Route: 048
  11. LOVENOX [Concomitant]
     Dosage: 4000 IU, QD
     Route: 058

REACTIONS (1)
  - Deafness bilateral [Unknown]
